FAERS Safety Report 19975463 (Version 1)
Quarter: 2021Q4

REPORT INFORMATION
  Report Type: Spontaneous
  Country: SE (occurrence: SE)
  Receive Date: 20211021
  Receipt Date: 20211021
  Transmission Date: 20220303
  Serious: Yes (Other)
  Sender: FDA-Public Use
  Company Number: None

PATIENT
  Age: 47 Year
  Sex: Female

DRUGS (2)
  1. RINVOQ [Suspect]
     Active Substance: UPADACITINIB
     Indication: Rheumatoid arthritis
     Dosage: 15 MG
     Route: 048
     Dates: start: 20201215
  2. METHOTREXATE SODIUM [Concomitant]
     Active Substance: METHOTREXATE SODIUM
     Indication: Product used for unknown indication
     Dosage: 20 MG
     Dates: start: 20200615

REACTIONS (5)
  - Muscular weakness [Unknown]
  - Dyspnoea [Unknown]
  - Asthenia [Unknown]
  - Weight increased [Unknown]
  - Blood cholesterol increased [Unknown]

NARRATIVE: CASE EVENT DATE: 20211005
